FAERS Safety Report 4350272-7 (Version None)
Quarter: 2004Q2

REPORT INFORMATION
  Report Type: 
  Country: None (occurrence: None)
  Receive Date: 20040426
  Receipt Date: 20040408
  Transmission Date: 20050107
  Serious: Yes (Hospitalization)
  Sender: FDA-Public Use
  Company Number: DSA_24238_2004

PATIENT
  Age: 64 Year
  Sex: Male

DRUGS (4)
  1. ENALAPRIL MALEATE [Suspect]
     Indication: ESSENTIAL HYPERTENSION
     Dosage: 20 MG QD PO
     Route: 048
     Dates: start: 20040301
  2. SELOKEN [Suspect]
     Indication: ESSENTIAL HYPERTENSION
     Dosage: 100 MG QD PO
     Route: 048
     Dates: start: 20040301
  3. AMLODIPINE BESYLATE [Concomitant]
  4. CATROPRIL/HYDROCHOLOROTHIAZIDE [Concomitant]

REACTIONS (3)
  - ALCOHOL USE [None]
  - MIGRAINE [None]
  - PANIC REACTION [None]
